FAERS Safety Report 4512662-9 (Version None)
Quarter: 2004Q4

REPORT INFORMATION
  Report Type: 
  Country: None (occurrence: None)
  Receive Date: 20041124
  Receipt Date: 20041115
  Transmission Date: 20050328
  Serious: No
  Sender: FDA-Public Use
  Company Number: S04-USA-07370-01

PATIENT
  Age: 32 Year
  Sex: Female

DRUGS (1)
  1. LEXAPRO [Suspect]
     Dosage: 5 MG QD PO
     Route: 048
     Dates: start: 20040101, end: 20040101

REACTIONS (3)
  - CONVERSION DISORDER [None]
  - CONVULSION [None]
  - LOSS OF CONSCIOUSNESS [None]
